FAERS Safety Report 8089776-2 (Version None)
Quarter: 2012Q1

REPORT INFORMATION
  Report Type: 
  Country: None (occurrence: None)
  Receive Date: 20120128
  Receipt Date: 20110713
  Transmission Date: 20120608
  Serious: No
  Sender: FDA-Public Use
  Company Number: US-ABBOTT-11P-163-0838656-00

PATIENT
  Sex: Male

DRUGS (6)
  1. DILTIAZEM HCL [Concomitant]
     Indication: HYPERTENSION
     Dosage: DAILY
  2. HUMIRA [Suspect]
     Indication: RHEUMATOID ARTHRITIS
     Dates: start: 20110706
  3. GLIMEPIRIDE [Concomitant]
     Indication: DIABETES MELLITUS
     Dosage: DAILY
  4. FLOMAX [Concomitant]
     Indication: PROSTATOMEGALY
     Dosage: DAILY
  5. METFFORMIN HYDROCHLORIDE [Concomitant]
     Indication: DIABETES MELLITUS
  6. LISINOPRIL [Concomitant]
     Indication: HYPERTENSION
     Dosage: DAILY

REACTIONS (1)
  - DRUG INEFFECTIVE [None]
